FAERS Safety Report 20443352 (Version 1)
Quarter: 2022Q1

REPORT INFORMATION
  Report Type: Spontaneous
  Country: US (occurrence: US)
  Receive Date: 20220208
  Receipt Date: 20220208
  Transmission Date: 20220423
  Serious: No
  Sender: FDA-Public Use
  Company Number: US-ALLERGAN-2137987US

PATIENT
  Sex: Female

DRUGS (1)
  1. OXYTROL FOR WOMEN [Suspect]
     Active Substance: OXYBUTYNIN
     Indication: Stress urinary incontinence
     Route: 061

REACTIONS (4)
  - Application site scab [Unknown]
  - Application site pruritus [Unknown]
  - Drug ineffective [Unknown]
  - Device adhesion issue [Unknown]
